FAERS Safety Report 6108579-9 (Version None)
Quarter: 2009Q1

REPORT INFORMATION
  Report Type: 
  Country: None (occurrence: None)
  Receive Date: 20090303
  Receipt Date: 20090219
  Transmission Date: 20090719
  Serious: Yes (Hospitalization, Disabling, Other)
  Sender: FDA-Public Use
  Company Number: US025467

PATIENT
  Age: 46 Year
  Sex: Male

DRUGS (6)
  1. TRISENOX [Suspect]
     Indication: ACUTE PROMYELOCYTIC LEUKAEMIA
     Dosage: 7.65 MG QD INTRAVENOUS DRIP
     Route: 041
     Dates: start: 20080213, end: 20080313
  2. CYTARABINE [Concomitant]
  3. METHOTREXATE [Concomitant]
  4. DEXAMETHASONE SODIUM PHOSPHATE [Concomitant]
  5. FILGRASTIM [Concomitant]
  6. GLYCYRRHIZIN/GLYCINE/CYSTEINE COMBINED DRUG [Concomitant]

REACTIONS (6)
  - ALANINE AMINOTRANSFERASE INCREASED [None]
  - BLOOD ALKALINE PHOSPHATASE INCREASED [None]
  - HAEMOGLOBIN DECREASED [None]
  - HEPATIC FUNCTION ABNORMAL [None]
  - PLATELET COUNT DECREASED [None]
  - WHITE BLOOD CELL COUNT DECREASED [None]
